FAERS Safety Report 5588344-1 (Version None)
Quarter: 2008Q1

REPORT INFORMATION
  Report Type: 
  Country: None (occurrence: None)
  Receive Date: 20080111
  Receipt Date: 20070924
  Transmission Date: 20080703
  Serious: No
  Sender: FDA-Public Use
  Company Number: A0683823A

PATIENT
  Age: 64 Year
  Sex: Female

DRUGS (4)
  1. TYKERB [Suspect]
     Indication: BREAST CANCER
     Dosage: 5TAB PER DAY
     Route: 048
     Dates: start: 20070922
  2. ANTIBIOTIC [Suspect]
     Indication: INFECTION
     Route: 065
  3. XELODA [Concomitant]
  4. COMPAZINE [Concomitant]

REACTIONS (1)
  - VOMITING [None]
